FAERS Safety Report 15279023 (Version 1)
Quarter: 2018Q3

REPORT INFORMATION
  Report Type: Spontaneous
  Country: IL (occurrence: IL)
  Receive Date: 20180815
  Receipt Date: 20180815
  Transmission Date: 20181010
  Serious: Yes (Other)
  Sender: FDA-Public Use
  Company Number: IL-AMGEN-ISRSP2018105921

PATIENT
  Age: 50 Year
  Sex: Female

DRUGS (3)
  1. ARCOXIA [Suspect]
     Active Substance: ETORICOXIB
     Indication: PAIN
     Dosage: ONCE IN A WHILE
     Route: 065
  2. ACAMOL [Concomitant]
     Active Substance: ACETAMINOPHEN
     Indication: PAIN
  3. ENBREL [Suspect]
     Active Substance: ETANERCEPT
     Indication: RHEUMATOID ARTHRITIS
     Dosage: 50 MG, ONCE WEEKLY
     Route: 065
     Dates: start: 2014, end: 2015

REACTIONS (13)
  - Memory impairment [Recovering/Resolving]
  - Blister [Recovered/Resolved]
  - Condition aggravated [Recovered/Resolved]
  - Influenza [Unknown]
  - Disorientation [Recovered/Resolved]
  - Lupus-like syndrome [Recovered/Resolved]
  - Intentional product use issue [Unknown]
  - Migraine [Recovered/Resolved]
  - Depression [Recovered/Resolved]
  - Drug hypersensitivity [Unknown]
  - Injection site pain [Recovered/Resolved]
  - Drug intolerance [Unknown]
  - Malaise [Recovered/Resolved]
